FAERS Safety Report 10446600 (Version 4)
Quarter: 2015Q2

REPORT INFORMATION
  Report Type: Spontaneous
  Country: IT (occurrence: IT)
  Receive Date: 20140911
  Receipt Date: 20150626
  Transmission Date: 20150821
  Serious: Yes (Other)
  Sender: FDA-Public Use
  Company Number: IT-UCBSA-2014010787

PATIENT
  Age: 14 Year
  Sex: Female

DRUGS (2)
  1. TOLEP [Suspect]
     Active Substance: OXCARBAZEPINE
     Indication: PARTIAL SEIZURES
     Dosage: 450 MG, ONCE DAILY (QD)
     Route: 048
     Dates: start: 20101002, end: 20101111
  2. KEPPRA [Suspect]
     Active Substance: LEVETIRACETAM
     Indication: PARTIAL SEIZURES
     Dosage: 500 MG, ONCE DAILY (QD)
     Route: 048
     Dates: start: 20101010, end: 20101111

REACTIONS (4)
  - Drug ineffective [Unknown]
  - Trismus [Recovered/Resolved]
  - Clonus [Recovered/Resolved]
  - Joint hyperextension [Recovered/Resolved]

NARRATIVE: CASE EVENT DATE: 20101111
